FAERS Safety Report 23363334 (Version 1)
Quarter: 2024Q1

REPORT INFORMATION
  Report Type: Spontaneous
  Country: US (occurrence: US)
  Receive Date: 20240103
  Receipt Date: 20240103
  Transmission Date: 20240409
  Serious: No
  Sender: FDA-Public Use
  Company Number: US-Eisai-EC-2023-153844

PATIENT

DRUGS (1)
  1. LEQEMBI [Suspect]
     Active Substance: LECANEMAB-IRMB
     Indication: Product used for unknown indication
     Dosage: DOSE UNKNOWN
     Route: 042
     Dates: start: 2023

REACTIONS (3)
  - Pyrexia [Unknown]
  - Chills [Unknown]
  - Dyskinesia [Unknown]

NARRATIVE: CASE EVENT DATE: 20230101
